FAERS Safety Report 24131119 (Version 1)
Quarter: 2024Q3

REPORT INFORMATION
  Report Type: Report from Study
  Country: FR (occurrence: FR)
  Receive Date: 20240724
  Receipt Date: 20240724
  Transmission Date: 20241016
  Serious: Yes (Life-Threatening, Other)
  Sender: AUROBINDO
  Company Number: FR-AUROBINDO-AUR-APL-2024-036502

PATIENT
  Age: 6 Year
  Sex: Male

DRUGS (1)
  1. METHYLPHENIDATE [Suspect]
     Active Substance: METHYLPHENIDATE
     Indication: Attention deficit hyperactivity disorder
     Dosage: 10 MILLIGRAM, DAILY
     Route: 065

REACTIONS (5)
  - Mitral valve incompetence [Unknown]
  - Coronary artery dissection [Unknown]
  - Thrombosis [Unknown]
  - Myocardial infarction [Unknown]
  - Dyskinesia [Unknown]
